FAERS Safety Report 8082627-1 (Version None)
Quarter: 2012Q1

REPORT INFORMATION
  Report Type: 
  Country: None (occurrence: None)
  Receive Date: 20120127
  Receipt Date: 20110215
  Transmission Date: 20120608
  Serious: No
  Sender: FDA-Public Use
  Company Number: US-ABBOTT-11P-163-0707218-00

PATIENT
  Sex: Female
  Weight: 47.67 kg

DRUGS (3)
  1. HUMIRA [Suspect]
     Indication: RHEUMATOID ARTHRITIS
     Route: 058
     Dates: start: 20060101
  2. ALLERGY [Concomitant]
     Indication: HYPERSENSITIVITY
     Dosage: SHOTS
     Route: 050
  3. RESTASIS [Concomitant]
     Indication: DRY EYE

REACTIONS (8)
  - ASTHENIA [None]
  - PAIN [None]
  - MALAISE [None]
  - INFLUENZA [None]
  - COUGH [None]
  - PYREXIA [None]
  - CHILLS [None]
  - SKELETAL INJURY [None]
